FAERS Safety Report 18947654 (Version 2)
Quarter: 2021Q1

REPORT INFORMATION
  Report Type: Spontaneous
  Country: DE (occurrence: DE)
  Receive Date: 20210226
  Receipt Date: 20210302
  Transmission Date: 20210420
  Serious: Yes (Other)
  Sender: FDA-Public Use
  Company Number: DE-B.I. PHARMACEUTICALS,INC./RIDGEFIELD-2020-BI-065828

PATIENT
  Age: 69 Year
  Sex: Female

DRUGS (4)
  1. DOCETAXEL. [Concomitant]
     Active Substance: DOCETAXEL
     Indication: ADENOCARCINOMA
     Dosage: 6 CYCLES, 75 MG/M2
     Dates: start: 20190704, end: 20191017
  2. DOCETAXEL. [Concomitant]
     Active Substance: DOCETAXEL
     Dates: start: 20210204
  3. VARGATEF [Suspect]
     Active Substance: NINTEDANIB
     Indication: ADENOCARCINOMA
     Dates: start: 20190705, end: 20190904
  4. VARGATEF [Suspect]
     Active Substance: NINTEDANIB
     Dates: start: 20190906, end: 20210204

REACTIONS (5)
  - Metastases to lung [Unknown]
  - Nausea [Unknown]
  - Diarrhoea [Unknown]
  - Hepatic pain [Unknown]
  - Metastases to liver [Unknown]

NARRATIVE: CASE EVENT DATE: 20210204
